FAERS Safety Report 19656377 (Version 1)
Quarter: 2021Q3

REPORT INFORMATION
  Report Type: Spontaneous
  Country: CA (occurrence: CA)
  Receive Date: 20210804
  Receipt Date: 20210804
  Transmission Date: 20211014
  Serious: Yes (Hospitalization, Other)
  Sender: FDA-Public Use
  Company Number: CA-ACCORD-234417

PATIENT
  Age: 76 Year
  Sex: Male

DRUGS (2)
  1. PEMETREXED. [Concomitant]
     Active Substance: PEMETREXED
  2. CARBOPLATIN. [Suspect]
     Active Substance: CARBOPLATIN
     Indication: NON-SMALL CELL LUNG CANCER
     Dosage: SOLUTION INTRAVENOUS

REACTIONS (1)
  - Febrile neutropenia [Unknown]
